FAERS Safety Report 6137203-4 (Version None)
Quarter: 2009Q1

REPORT INFORMATION
  Report Type: 
  Country: None (occurrence: None)
  Receive Date: 20090330
  Receipt Date: 20090323
  Transmission Date: 20090719
  Serious: Yes (Other)
  Sender: FDA-Public Use
  Company Number: FR-BRISTOL-MYERS SQUIBB COMPANY-14475644

PATIENT
  Age: 28 Year
  Sex: Female
  Weight: 45 kg

DRUGS (5)
  1. ORENCIA [Suspect]
     Indication: RHEUMATOID ARTHRITIS
     Dosage: SECOND INFUSION ON 13-NOV-2008 AND THIRD INFUSION ON 28-NOV-2008
     Route: 042
     Dates: start: 20081030
  2. RITUXAN [Suspect]
     Dosage: JUL 2007 TWO COURSES;ON 24JUN, 08JUL2008.
     Dates: start: 20080624, end: 20080708
  3. METHOTREXATE [Suspect]
     Route: 048
  4. SPECIAFOLDINE [Concomitant]
     Dosage: 4DF=4 TABLETS.
  5. CHONDROSULF [Concomitant]
     Dosage: 3DF=3 TABLETS.

REACTIONS (4)
  - AGRANULOCYTOSIS [None]
  - FEBRILE NEUTROPENIA [None]
  - GINGIVITIS [None]
  - MOUTH ULCERATION [None]
